FAERS Safety Report 23125500 (Version 1)
Quarter: 2023Q4

REPORT INFORMATION
  Report Type: Spontaneous
  Country: US (occurrence: None)
  Receive Date: 20231030
  Receipt Date: 20231030
  Transmission Date: 20240109
  Serious: No
  Sender: FDA-Public Use
  Company Number: None

PATIENT
  Sex: Female

DRUGS (1)
  1. STELARA [Suspect]
     Active Substance: USTEKINUMAB
     Indication: Psoriasis
     Dosage: OTHER QUANTITY : 45MG/.5ML;?OTHER FREQUENCY : EVERY 12 WEEKS;?
     Route: 058
     Dates: start: 201606

REACTIONS (4)
  - Drug ineffective [None]
  - Pruritus [None]
  - Skin burning sensation [None]
  - Erythema [None]
